FAERS Safety Report 13267090 (Version 2)
Quarter: 2017Q1

REPORT INFORMATION
  Report Type: Spontaneous
  Country: GB (occurrence: GB)
  Receive Date: 20170224
  Receipt Date: 20170224
  Transmission Date: 20170428
  Serious: Yes (Other)
  Sender: FDA-Public Use
  Company Number: GB-AUROBINDO-AUR-APL-2016-00216

PATIENT
  Age: 41 Year
  Sex: Female

DRUGS (1)
  1. PARACETAMOL [Suspect]
     Active Substance: ACETAMINOPHEN

REACTIONS (7)
  - Noninfective encephalitis [Recovered/Resolved]
  - Influenza like illness [Recovered/Resolved]
  - Vaccination site swelling [Recovered/Resolved]
  - Headache [Recovered/Resolved]
  - Vaccination site warmth [Recovered/Resolved]
  - Gastrointestinal disorder [Recovered/Resolved]
  - Vaccination site erythema [Recovered/Resolved]

NARRATIVE: CASE EVENT DATE: 20151008
